FAERS Safety Report 6075890-X (Version None)
Quarter: 2009Q1

REPORT INFORMATION
  Report Type: 
  Country: None (occurrence: None)
  Receive Date: 20090212
  Receipt Date: 20090205
  Transmission Date: 20090719
  Serious: Yes (Hospitalization)
  Sender: FDA-Public Use
  Company Number: US-GENENTECH-238359

PATIENT
  Age: 48 Year
  Sex: Female
  Weight: 53.6 kg

DRUGS (15)
  1. BEVACIZUMAB [Suspect]
     Indication: NON-SMALL CELL LUNG CANCER
     Dosage: 15 MG/KG, Q3W
     Route: 042
     Dates: start: 20070228, end: 20070228
  2. GEMCITABINE [Suspect]
     Indication: NON-SMALL CELL LUNG CANCER
     Dosage: 1000 MG/M2, X2
     Route: 042
     Dates: start: 20070228, end: 20070228
  3. DOCETAXEL [Suspect]
     Indication: NON-SMALL CELL LUNG CANCER
     Dosage: 129 MG, SINGLE
     Route: 042
     Dates: start: 20070307, end: 20070307
  4. PROCHLORPERAZINE [Concomitant]
     Indication: DRUG USE FOR UNKNOWN INDICATION
  5. PREDNISONE [Concomitant]
     Indication: DRUG USE FOR UNKNOWN INDICATION
  6. DIOVAN [Concomitant]
     Indication: DRUG USE FOR UNKNOWN INDICATION
  7. HYDROMORPHONE HCL [Concomitant]
     Indication: DRUG USE FOR UNKNOWN INDICATION
  8. INSULIN GLARGINE [Concomitant]
     Indication: DRUG USE FOR UNKNOWN INDICATION
  9. INSULIN LISPRO [Concomitant]
     Indication: DRUG USE FOR UNKNOWN INDICATION
  10. CHLORTHIAZIDE TAB [Concomitant]
     Indication: DRUG USE FOR UNKNOWN INDICATION
  11. INSULIN HUMAN [Concomitant]
     Indication: DRUG USE FOR UNKNOWN INDICATION
  12. DECADRON [Concomitant]
  13. METOPROLOL TARTRATE [Concomitant]
     Indication: DRUG USE FOR UNKNOWN INDICATION
  14. ATIVAN [Concomitant]
  15. COUMADIN [Concomitant]
     Indication: DRUG USE FOR UNKNOWN INDICATION

REACTIONS (4)
  - ATRIAL FIBRILLATION [None]
  - DEEP VEIN THROMBOSIS [None]
  - PNEUMONIA [None]
  - VOMITING [None]
